FAERS Safety Report 4503369-2 (Version None)
Quarter: 2004Q4

REPORT INFORMATION
  Report Type: 
  Country: None (occurrence: None)
  Receive Date: 20041112
  Receipt Date: 20041028
  Transmission Date: 20050328
  Serious: No
  Sender: FDA-Public Use
  Company Number: 2004AC00669

PATIENT
  Age: 48 Year
  Sex: Female

DRUGS (2)
  1. SEROQUEL [Suspect]
     Indication: ANXIETY DISORDER
     Dosage: 100 MG BID PO
     Route: 048
     Dates: start: 20031101
  2. FEVARIN [Concomitant]

REACTIONS (11)
  - ALOPECIA [None]
  - CONSTIPATION [None]
  - DECREASED ACTIVITY [None]
  - DECREASED INTEREST [None]
  - DEPRESSION [None]
  - DISTURBANCE IN ATTENTION [None]
  - FATIGUE [None]
  - FEELING ABNORMAL [None]
  - MUSCULAR WEAKNESS [None]
  - TRISMUS [None]
  - WEIGHT INCREASED [None]
